FAERS Safety Report 8012974-0 (Version None)
Quarter: 2011Q4

REPORT INFORMATION
  Report Type: 
  Country: None (occurrence: None)
  Receive Date: 20111229
  Receipt Date: 20111222
  Transmission Date: 20120403
  Serious: Yes (Other)
  Sender: FDA-Public Use
  Company Number: US-JNJFOC-20111211000

PATIENT
  Age: 36 Year
  Sex: Female
  Weight: 43.55 kg

DRUGS (2)
  1. TYLENOL (CAPLET) [Suspect]
     Indication: HEADACHE
     Route: 048
  2. TYLENOL (CAPLET) [Suspect]
     Route: 048

REACTIONS (3)
  - HAEMATEMESIS [None]
  - TREMOR [None]
  - HYPERSENSITIVITY [None]
